FAERS Safety Report 18059922 (Version 1)
Quarter: 2020Q3

REPORT INFORMATION
  Report Type: Spontaneous
  Country: US (occurrence: US)
  Receive Date: 20200723
  Receipt Date: 20200723
  Transmission Date: 20201103
  Serious: Yes (Hospitalization)
  Sender: FDA-Public Use
  Company Number: None

PATIENT
  Age: 35 Year
  Sex: Female
  Weight: 68 kg

DRUGS (1)
  1. DROPERIDOL. [Suspect]
     Active Substance: DROPERIDOL
     Indication: MIGRAINE
     Dosage: ?          OTHER FREQUENCY:X1;?
     Route: 030
     Dates: start: 20200722, end: 20200722

REACTIONS (7)
  - Tachycardia [None]
  - Dysarthria [None]
  - Chest discomfort [None]
  - Agitation [None]
  - Anxiety [None]
  - Tongue movement disturbance [None]
  - Dyskinesia [None]

NARRATIVE: CASE EVENT DATE: 20200722
